FAERS Safety Report 17556121 (Version 1)
Quarter: 2020Q1

REPORT INFORMATION
  Report Type: Spontaneous
  Country: US (occurrence: US)
  Receive Date: 20200318
  Receipt Date: 20200318
  Transmission Date: 20200409
  Serious: No
  Sender: FDA-Public Use
  Company Number: None

PATIENT
  Age: 41 Year
  Sex: Female
  Weight: 81 kg

DRUGS (1)
  1. MESALAMINE. [Suspect]
     Active Substance: MESALAMINE
     Indication: COLITIS ULCERATIVE
     Route: 048
     Dates: start: 20200110

REACTIONS (9)
  - Arthralgia [None]
  - Product substitution issue [None]
  - Palpitations [None]
  - Diarrhoea [None]
  - Urinary incontinence [None]
  - Constipation [None]
  - Abdominal distension [None]
  - Feeling cold [None]
  - Feeling hot [None]
